FAERS Safety Report 4732932-9 (Version None)
Quarter: 2005Q3

REPORT INFORMATION
  Report Type: 
  Country: None (occurrence: None)
  Receive Date: 20050803
  Receipt Date: 20050602
  Transmission Date: 20060218
  Serious: No
  Sender: FDA-Public Use
  Company Number: US-GLAXOSMITHKLINE-A0560938A

PATIENT
  Sex: Female

DRUGS (16)
  1. AVANDAMET [Suspect]
     Route: 048
     Dates: start: 20050403, end: 20050501
  2. AVANDIA [Suspect]
     Indication: DRUG USE FOR UNKNOWN INDICATION
     Dosage: 2MG PER DAY
     Route: 048
  3. AMARYL [Concomitant]
  4. FOSAMAX [Concomitant]
  5. ATENOL [Concomitant]
  6. LANOXIN [Concomitant]
  7. SYNTHROID [Concomitant]
  8. FOLIC ACID [Concomitant]
  9. NORVASC [Concomitant]
  10. AVALIDE [Concomitant]
  11. LIPITOR [Concomitant]
  12. EXTRA STRENGTH TYLENOL [Concomitant]
     Route: 065
  13. ASPIRIN [Concomitant]
  14. HYDROMORPHONE HCL [Concomitant]
     Route: 065
  15. NIACIN [Concomitant]
  16. VITAMINS [Concomitant]

REACTIONS (3)
  - NAUSEA [None]
  - WEIGHT DECREASED [None]
  - WEIGHT INCREASED [None]
